FAERS Safety Report 4861789-0 (Version None)
Quarter: 2005Q4

REPORT INFORMATION
  Report Type: 
  Country: None (occurrence: None)
  Receive Date: 20051220
  Receipt Date: 20051212
  Transmission Date: 20060501
  Serious: Yes (Other)
  Sender: FDA-Public Use
  Company Number: US-MERCK-0512USA02532

PATIENT
  Sex: Female

DRUGS (1)
  1. HEP-B-GAMMAGEE [Suspect]
     Indication: PROPHYLAXIS
     Route: 065

REACTIONS (2)
  - ADVERSE EVENT [None]
  - METAL POISONING [None]
